FAERS Safety Report 5735605-9 (Version None)
Quarter: 2008Q2

REPORT INFORMATION
  Report Type: 
  Country: None (occurrence: None)
  Receive Date: 20080512
  Receipt Date: 20080430
  Transmission Date: 20081010
  Serious: Yes (Hospitalization)
  Sender: FDA-Public Use
  Company Number: JP-PFIZER INC-2008038214

PATIENT
  Age: 64 Year
  Sex: Female

DRUGS (7)
  1. CYTOTEC [Suspect]
     Indication: PEPTIC ULCER
     Route: 048
     Dates: start: 20080401, end: 20080424
  2. ZANTAC [Suspect]
     Indication: PEPTIC ULCER
     Route: 048
     Dates: start: 20080401, end: 20080401
  3. PROMAC /JPN/ [Concomitant]
     Route: 048
  4. THYRADIN S [Concomitant]
     Route: 048
  5. ZESULAN [Concomitant]
     Route: 048
  6. ASPIRIN [Concomitant]
     Route: 048
  7. OMEPRAZOLE [Concomitant]

REACTIONS (1)
  - GRANULOCYTOPENIA [None]
